FAERS Safety Report 6303011-4 (Version None)
Quarter: 2009Q3

REPORT INFORMATION
  Report Type: 
  Country: None (occurrence: None)
  Receive Date: 20090810
  Receipt Date: 20090803
  Transmission Date: 20100115
  Serious: No
  Sender: FDA-Public Use
  Company Number: US-JNJFOC-20090800931

PATIENT
  Sex: Female
  Weight: 75.75 kg

DRUGS (12)
  1. FENTANYL TRANSDERMAL SYSTEM [Suspect]
     Route: 062
  2. FENTANYL TRANSDERMAL SYSTEM [Suspect]
     Route: 062
  3. FENTANYL TRANSDERMAL SYSTEM [Suspect]
     Route: 062
  4. FENTANYL TRANSDERMAL SYSTEM [Suspect]
     Indication: ARTHRALGIA
     Route: 062
  5. NEURONTIN [Concomitant]
     Indication: NEURALGIA
     Route: 048
  6. PERCOCET [Concomitant]
     Indication: BREAKTHROUGH PAIN
     Dosage: 1 TABLET 3-4 HOURS AS NEEDED
     Route: 048
  7. NEXIUM [Concomitant]
     Indication: GASTRIC DISORDER
     Route: 048
  8. PLAVIX [Concomitant]
     Indication: TRANSIENT ISCHAEMIC ATTACK
     Route: 048
  9. CRESTOR [Concomitant]
     Indication: BLOOD CHOLESTEROL INCREASED
     Route: 048
  10. NIASPAN [Concomitant]
     Indication: BLOOD CHOLESTEROL INCREASED
     Route: 048
  11. CELEXA [Concomitant]
     Indication: ANXIETY
     Dosage: 20 MG ONE AND HALF TABLETS
     Route: 048
  12. AMBIEN [Concomitant]
     Indication: SLEEP DISORDER
     Dosage: EACH NIGHT
     Route: 048

REACTIONS (3)
  - SOMNOLENCE [None]
  - TREATMENT NONCOMPLIANCE [None]
  - VISION BLURRED [None]
